FAERS Safety Report 8956101 (Version 1)
Quarter: 2012Q4

REPORT INFORMATION
  Report Type: Report from Study
  Country: FR (occurrence: FR)
  Receive Date: 20121210
  Receipt Date: 20121210
  Transmission Date: 20130627
  Serious: Yes (Other)
  Sender: FDA-Public Use
  Company Number: FR-BAXTER-2012BAX025841

PATIENT
  Age: 63 Year
  Sex: Female
  Weight: 83 kg

DRUGS (10)
  1. ENDOXAN 2000 MG, LYOPHILISAT POUR SOLUTION INJECTABLE [Suspect]
     Indication: NODULAR (FOLLICULAR) LYMPHOMA
     Route: 042
     Dates: start: 20070111
  2. ENDOXAN 2000 MG, LYOPHILISAT POUR SOLUTION INJECTABLE [Suspect]
     Route: 042
     Dates: start: 20070426
  3. RITUXIMAB [Suspect]
     Indication: NODULAR (FOLLICULAR) LYMPHOMA
     Route: 042
     Dates: start: 20070111, end: 20070607
  4. RITUXIMAB [Suspect]
     Route: 042
     Dates: start: 20090316, end: 20090509
  5. DOXORUBICIN [Suspect]
     Indication: NODULAR (FOLLICULAR) LYMPHOMA
     Route: 042
     Dates: start: 20070111
  6. DOXORUBICIN [Suspect]
     Route: 042
     Dates: start: 20070426
  7. VINCRISTINE [Suspect]
     Indication: NODULAR (FOLLICULAR) LYMPHOMA
     Route: 042
     Dates: start: 20070111
  8. VINCRISTINE [Suspect]
     Route: 042
     Dates: start: 20070426
  9. PREDNISONE [Suspect]
     Indication: NODULAR (FOLLICULAR) LYMPHOMA
     Route: 048
     Dates: start: 20070111
  10. PREDNISONE [Suspect]
     Route: 048
     Dates: start: 20070430

REACTIONS (1)
  - Breast cancer [Not Recovered/Not Resolved]
